FAERS Safety Report 7020541-0 (Version None)
Quarter: 2010Q3

REPORT INFORMATION
  Report Type: 
  Country: None (occurrence: None)
  Receive Date: 20100927
  Receipt Date: 20100916
  Transmission Date: 20110219
  Serious: Yes (Death, Hospitalization)
  Sender: FDA-Public Use
  Company Number: WAES 1009USA03665

PATIENT
  Sex: Female

DRUGS (2)
  1. ISENTRESS [Suspect]
     Indication: HIV INFECTION
     Dosage: PO
     Route: 048
     Dates: start: 20100812
  2. LOPINAVIR AND RITONAVIR [Suspect]
     Dates: start: 20100812

REACTIONS (3)
  - BLINDNESS [None]
  - HEADACHE [None]
  - HEMIPARESIS [None]
